FAERS Safety Report 8961550 (Version 3)
Quarter: 2013Q1

REPORT INFORMATION
  Report Type: Report from Study
  Country: BR (occurrence: BR)
  Receive Date: 20121213
  Receipt Date: 20130327
  Transmission Date: 20140127
  Serious: Yes (Other)
  Sender: FDA-Public Use
  Company Number: BR-BAYER-2012-129591

PATIENT
  Sex: Female

DRUGS (5)
  1. BETAFERON [Suspect]
     Indication: MULTIPLE SCLEROSIS
     Dosage: 8 MIU, QOD
     Route: 058
     Dates: start: 20120912
  2. BUPROPION [Concomitant]
     Indication: DEPRESSION
     Dosage: UNK
     Route: 046
     Dates: start: 2006
  3. LAMOTRIGINE [Concomitant]
     Indication: DEPRESSION
     Dosage: UNK
     Route: 048
     Dates: start: 2006
  4. LAMOTRIGINE [Concomitant]
     Indication: ANXIETY
     Dosage: 1.5 DF, QD
     Route: 048
     Dates: start: 2006
  5. BUPROPION [Concomitant]
     Indication: ANXIETY
     Dosage: 1 DF, QD
     Route: 048
     Dates: start: 2006

REACTIONS (5)
  - Abdominal mass [Not Recovered/Not Resolved]
  - Injection site rash [Not Recovered/Not Resolved]
  - Injection site pain [Recovering/Resolving]
  - Musculoskeletal disorder [Not Recovered/Not Resolved]
  - Insomnia [Not Recovered/Not Resolved]
